FAERS Safety Report 8405957-X (Version None)
Quarter: 2012Q2

REPORT INFORMATION
  Report Type: 
  Country: None (occurrence: None)
  Receive Date: 20120529
  Receipt Date: 20010202
  Transmission Date: 20120825
  Serious: Yes (Life-Threatening, Hospitalization)
  Sender: FDA-Public Use
  Company Number: 02100-JPN-00-0106

PATIENT
  Age: 62 Year
  Sex: Male
  Weight: 55 kg

DRUGS (11)
  1. LASIX (FUROSEMIDE) TABLET 40 MG 10/31/2000 TO 12/20/2000 [Concomitant]
  2. PLETAL [Suspect]
     Indication: PERIPHERAL ARTERIAL OCCLUSIVE DISEASE
     Dosage: 100 MG, BID, ORAL
     Route: 048
     Dates: start: 20001113, end: 20001215
  3. SOLON (SOFALCONE), 100 MG 10/31/2000 TO 12/20/2000 [Concomitant]
  4. HALCION (TRIAZOLAM) TABLET, .125 MG 10/31/2000 TO 12/20/2000 [Concomitant]
  5. PURSENNID (SENNA LEAF) TABLET, 12 MG 10/31/2000 TO 12/20/2000 [Concomitant]
  6. TRANDOLAPRIL [Suspect]
     Dosage: 1 MG, QD, ORAL
     Route: 048
     Dates: start: 20001031, end: 20001217
  7. FLUVASTATIN [Suspect]
     Dosage: 20 MG, QD, ORAL
     Route: 048
     Dates: start: 20001117, end: 20001215
  8. OPALMON (LIMAPROST) TABLET, 5UG [Suspect]
     Dosage: 10 UG, TID, ORAL
     Route: 048
     Dates: start: 20001113, end: 20001215
  9. MEXITIL [Suspect]
     Dosage: 100 MG, TID, ORAL
     Route: 048
     Dates: start: 20001031, end: 20001219
  10. ADALAT (NIFEDIPINE) TABLET, 10 MG 10/31/2000 TO 12/20/2000 [Concomitant]
  11. GASTER (FAMOTIDINE) TABLET, 10 MG 10/31/2000 TO 12/20/2000 [Concomitant]

REACTIONS (18)
  - RASH GENERALISED [None]
  - ALANINE AMINOTRANSFERASE INCREASED [None]
  - GAMMA-GLUTAMYLTRANSFERASE INCREASED [None]
  - BLOOD UREA INCREASED [None]
  - ANAEMIA [None]
  - BLOOD PRESSURE SYSTOLIC DECREASED [None]
  - VENTRICULAR TACHYCARDIA [None]
  - ASPARTATE AMINOTRANSFERASE INCREASED [None]
  - SHOCK HAEMORRHAGIC [None]
  - PYREXIA [None]
  - EOSINOPHILIA [None]
  - BLOOD CREATININE INCREASED [None]
  - HYPOTENSION [None]
  - MELAENA [None]
  - BLOOD LACTATE DEHYDROGENASE INCREASED [None]
  - HEPATIC FUNCTION ABNORMAL [None]
  - ECCHYMOSIS [None]
  - PULMONARY CONGESTION [None]
